FAERS Safety Report 9161041 (Version 1)
Quarter: 2013Q1

REPORT INFORMATION
  Report Type: Report from Study
  Country: IE (occurrence: IE)
  Receive Date: 20130313
  Receipt Date: 20130313
  Transmission Date: 20140127
  Serious: Yes (Other)
  Sender: FDA-Public Use
  Company Number: IE-VERTEX PHARMACEUTICAL INC.-2012-020339

PATIENT
  Age: 59 Year
  Sex: Female
  Weight: 85 kg

DRUGS (6)
  1. VX-950 (TELAPREVIR) [Suspect]
     Indication: HEPATITIS C
     Dosage: 750 MG, TID
     Route: 048
     Dates: start: 20110825
  2. COPEGUS [Concomitant]
     Indication: HEPATITIS C
     Dosage: DOSAGE FORM: TABLET
     Route: 048
     Dates: start: 20110825
  3. PEGASYS [Concomitant]
     Indication: HEPATITIS C
     Dosage: 180 ?G, QW
  4. MOTILIUM [Concomitant]
     Dosage: UNK, TID
     Route: 048
     Dates: start: 20110913
  5. NEORECORMON [Concomitant]
     Dosage: DOSAGE FORM: UNSPECIFIED
     Route: 058
     Dates: start: 20110921
  6. EMULSIDERM [Concomitant]
     Dosage: UNK, BID
     Route: 061
     Dates: start: 20110913

REACTIONS (5)
  - Rash generalised [Recovered/Resolved]
  - Anaemia [Unknown]
  - Acrochordon [Unknown]
  - Feeling hot [Unknown]
  - Chills [Unknown]
